FAERS Safety Report 7953366-X (Version None)
Quarter: 2011Q4

REPORT INFORMATION
  Report Type: 
  Country: None (occurrence: None)
  Receive Date: 20111202
  Receipt Date: 20111128
  Transmission Date: 20120403
  Serious: Yes (Other)
  Sender: FDA-Public Use
  Company Number: US-BIOGENIDEC-2011BI039841

PATIENT
  Age: 56 Year
  Sex: Female

DRUGS (1)
  1. AVONEX [Suspect]
     Indication: MULTIPLE SCLEROSIS
     Route: 030
     Dates: start: 19960101

REACTIONS (5)
  - RETINAL TEAR [None]
  - EYE INFLAMMATION [None]
  - NAUSEA [None]
  - WEIGHT DECREASED [None]
  - OCULAR VASCULAR DISORDER [None]
